FAERS Safety Report 10760970 (Version 1)
Quarter: 2015Q1

REPORT INFORMATION
  Report Type: Spontaneous
  Country: US (occurrence: None)
  Receive Date: 20150203
  Receipt Date: 20150203
  Transmission Date: 20150721
  Serious: Yes (Disabling)
  Sender: FDA-Public Use
  Company Number: None

PATIENT
  Age: 64 Year
  Sex: Female
  Weight: 56.7 kg

DRUGS (6)
  1. GLUCOSAMINE [Concomitant]
     Active Substance: GLUCOSAMINE
  2. PROLIA [Suspect]
     Active Substance: DENOSUMAB
     Indication: OSTEOPOROSIS
     Dosage: 1 SHOT EVERY 6 MONTHS ONCE EVERY 6 MONTH INTO THE MUSCLE
     Route: 030
  3. CALCIUM WITH VITAMIN D [Concomitant]
     Active Substance: CALCIUM\VITAMIN D
  4. RESTASIS [Concomitant]
     Active Substance: CYCLOSPORINE
  5. COMBIGAN [Concomitant]
     Active Substance: BRIMONIDINE TARTRATE\TIMOLOL MALEATE
  6. GLAUCOMA DROPS [Concomitant]

REACTIONS (4)
  - Erythema [None]
  - Skin exfoliation [None]
  - Eczema [None]
  - Sunburn [None]

NARRATIVE: CASE EVENT DATE: 20140601
